FAERS Safety Report 8854149 (Version 1)
Quarter: 2012Q4

REPORT INFORMATION
  Report Type: Spontaneous
  Country: US (occurrence: None)
  Receive Date: 20121018
  Receipt Date: 20121018
  Transmission Date: 20130627
  Serious: Yes (Death)
  Sender: FDA-Public Use
  Company Number: ADR-2012-01886

PATIENT
  Sex: Male

DRUGS (14)
  1. LIORESAL INTRATHECAL (BACLOFEN INJECTION) [Suspect]
     Indication: PAIN
     Dosage: 44 mcg/ml
     Route: 042
     Dates: start: 20120920
  2. LIORESAL INTRATHECAL (BACLOFEN INJECTION) [Suspect]
     Indication: POST HERPETIC NEURALGIA
     Dosage: 44 mcg/ml
     Route: 042
     Dates: start: 20120920
  3. LIORESAL INTRATHECAL (BACLOFEN INJECTION) [Suspect]
     Indication: PAIN
     Route: 042
  4. LIORESAL INTRATHECAL (BACLOFEN INJECTION) [Suspect]
     Indication: POST HERPETIC NEURALGIA
     Route: 042
  5. DILAUDID [Suspect]
     Indication: PAIN
     Route: 042
     Dates: start: 20120920
  6. DILAUDID [Suspect]
     Indication: POST HERPETIC NEURALGIA
     Route: 042
     Dates: start: 20120920
  7. DILAUDID [Suspect]
     Indication: PAIN
     Route: 042
  8. DILAUDID [Suspect]
     Indication: POST HERPETIC NEURALGIA
     Route: 042
  9. BUPIVACAINE [Suspect]
     Indication: PAIN
     Dates: start: 20120920
  10. BUPIVACAINE [Suspect]
     Indication: POST HERPETIC NEURALGIA
     Dates: start: 20120920
  11. BUPIVACAINE [Suspect]
     Indication: PAIN
     Route: 042
  12. BUPIVACAINE [Suspect]
     Indication: POST HERPETIC NEURALGIA
     Route: 042
  13. DILAUDID (HYDROMORPHONE) [Concomitant]
  14. BUPIVACAINE [Concomitant]

REACTIONS (4)
  - Device power source issue [None]
  - Cardiac arrest [None]
  - Atrial fibrillation [None]
  - Arteriosclerosis [None]
